FAERS Safety Report 9519767 (Version 1)
Quarter: 2013Q1

REPORT INFORMATION
  Report Type: Spontaneous
  Country: US (occurrence: None)
  Receive Date: 20130305
  Receipt Date: 20130305
  Transmission Date: 20140127
  Serious: Yes (Hospitalization)
  Sender: FDA-Public Use
  Company Number: 163-21880-12080763

PATIENT
  Age: 85 Year
  Sex: 0

DRUGS (1)
  1. REVLIMID (LENALIDOMIDE) (CAPSULES) [Suspect]
     Indication: MYELODYSPLASTIC SYNDROME
     Dosage: 1.6667 MG, Q 3 DAYS, PO
     Route: 048
     Dates: start: 20120713

REACTIONS (2)
  - Hip fracture [None]
  - Fall [None]
